FAERS Safety Report 17532532 (Version 2)
Quarter: 2020Q2

REPORT INFORMATION
  Report Type: Report from Study
  Country: None (occurrence: US)
  Receive Date: 20200312
  Receipt Date: 20200615
  Transmission Date: 20200713
  Serious: Yes (Hospitalization, Other)
  Sender: FDA-Public Use
  Company Number: US-ABBVIE-20P-163-3311330-00

PATIENT
  Age: 77 Year
  Sex: Female

DRUGS (2)
  1. IMBRUVICA [Suspect]
     Active Substance: IBRUTINIB
     Route: 048
  2. IMBRUVICA [Suspect]
     Active Substance: IBRUTINIB
     Indication: CHRONIC LYMPHOCYTIC LEUKAEMIA
     Route: 048
     Dates: start: 20180216

REACTIONS (19)
  - Skin discolouration [Unknown]
  - Insomnia [Unknown]
  - Haemoglobin decreased [Unknown]
  - Hypophagia [Unknown]
  - Rib fracture [Unknown]
  - Nausea [Unknown]
  - Vomiting [Unknown]
  - Loss of consciousness [Unknown]
  - Nodule [Unknown]
  - Nasal congestion [Unknown]
  - Malaise [Unknown]
  - Rash [Unknown]
  - Fatigue [Unknown]
  - Increased tendency to bruise [Unknown]
  - Headache [Unknown]
  - Skin haemorrhage [Unknown]
  - Immune system disorder [Unknown]
  - Hypertension [Not Recovered/Not Resolved]
  - Foot fracture [Unknown]

NARRATIVE: CASE EVENT DATE: 20200306
